FAERS Safety Report 15822349 (Version 1)
Quarter: 2019Q1

REPORT INFORMATION
  Report Type: Spontaneous
  Country: GB (occurrence: GB)
  Receive Date: 20190114
  Receipt Date: 20190114
  Transmission Date: 20190417
  Serious: Yes (Hospitalization)
  Sender: FDA-Public Use
  Company Number: PHHY2019GB004968

PATIENT

DRUGS (2)
  1. VOTUBIA [Suspect]
     Active Substance: EVEROLIMUS
     Indication: EPILEPSY
     Dosage: UNK
     Route: 065
  2. VOTUBIA [Suspect]
     Active Substance: EVEROLIMUS
     Dosage: 8 MG, UNK
     Route: 065

REACTIONS (1)
  - Respiratory disorder [Unknown]
